FAERS Safety Report 11349440 (Version 1)
Quarter: 2015Q3

REPORT INFORMATION
  Report Type: Spontaneous
  Country: US (occurrence: None)
  Receive Date: 20150805
  Receipt Date: 20150805
  Transmission Date: 20151125
  Serious: No
  Sender: FDA-Public Use
  Company Number: UNT-2015-008042

PATIENT
  Age: 26 Year
  Sex: Female
  Weight: 94.8 kg

DRUGS (2)
  1. TYVASO [Suspect]
     Active Substance: TREPROSTINIL
     Indication: PULMONARY ARTERIAL HYPERTENSION
     Dosage: 24 UG, QID, INHALATION
     Route: 055
     Dates: start: 20140820
  2. ORENITRAM [Suspect]
     Active Substance: TREPROSTINIL
     Indication: PULMONARY ARTERIAL HYPERTENSION
     Route: 048
     Dates: start: 20150630

REACTIONS (5)
  - Gait disturbance [None]
  - Device battery issue [None]
  - Chest discomfort [None]
  - Dyspnoea [None]
  - Therapy cessation [None]
